FAERS Safety Report 17581138 (Version 1)
Quarter: 2020Q1

REPORT INFORMATION
  Report Type: Spontaneous
  Country: DE (occurrence: DE)
  Receive Date: 20200325
  Receipt Date: 20200325
  Transmission Date: 20200409
  Serious: Yes (Other)
  Sender: FDA-Public Use
  Company Number: DE-PFIZER INC-2020126313

PATIENT
  Age: 68 Year
  Sex: Female

DRUGS (4)
  1. SINUPRET [GENTIANA LUTEA ROOT;PRIMULA SPP. FLOWER;RUMEX SPP. HERB;SAMB [Suspect]
     Active Substance: DIETARY SUPPLEMENT\HERBALS
     Dosage: UNK
     Route: 048
     Dates: start: 202001
  2. BRONCHICUM THYMIAN [Suspect]
     Active Substance: HERBALS
     Dosage: UNK
  3. MULTILAC SYNBIOTIC [Suspect]
     Active Substance: PROBIOTICS NOS
     Dosage: UNK
  4. PANTOPRAZOLE [Suspect]
     Active Substance: PANTOPRAZOLE
     Dosage: UNK

REACTIONS (2)
  - Haematemesis [Recovering/Resolving]
  - Diarrhoea [Recovering/Resolving]

NARRATIVE: CASE EVENT DATE: 202001
